FAERS Safety Report 8158212-X (Version None)
Quarter: 2012Q1

REPORT INFORMATION
  Report Type: 
  Country: None (occurrence: None)
  Receive Date: 20120222
  Receipt Date: 20120214
  Transmission Date: 20120608
  Serious: Yes (Other)
  Sender: FDA-Public Use
  Company Number: CA-BRISTOL-MYERS SQUIBB COMPANY-15543341

PATIENT
  Age: 57 Year
  Sex: Female

DRUGS (5)
  1. PREMARIN [Concomitant]
  2. TYLENOL W/ CODEINE NO. 3 [Concomitant]
  3. AMLODIPINE BESYLATE [Concomitant]
  4. TEMSIROLIMUS [Concomitant]
  5. ORENCIA [Suspect]
     Indication: RHEUMATOID ARTHRITIS
     Dosage: LAST DOSE ON 13SEP11,17JAN12,NO OF INFUSIONS:17,LOT NO:1G64569 EXP DT:MAR14
     Route: 042
     Dates: start: 20100107

REACTIONS (5)
  - CARDIAC DISORDER [None]
  - CHRONIC OBSTRUCTIVE PULMONARY DISEASE [None]
  - NASOPHARYNGITIS [None]
  - LOWER RESPIRATORY TRACT INFECTION [None]
  - FATIGUE [None]
